FAERS Safety Report 19088660 (Version 5)
Quarter: 2021Q3

REPORT INFORMATION
  Report Type: Report from Study
  Country: None (occurrence: US)
  Receive Date: 20210402
  Receipt Date: 20210907
  Transmission Date: 20211014
  Serious: Yes (Hospitalization, Other)
  Sender: FDA-Public Use
  Company Number: US-ABBVIE-21K-163-3792222-00

PATIENT
  Age: 56 Year
  Sex: Female
  Weight: 81.72 kg

DRUGS (21)
  1. POTASSIUM CHLORIDE. [Concomitant]
     Active Substance: POTASSIUM CHLORIDE
     Indication: PRODUCT USED FOR UNKNOWN INDICATION
  2. MYRBETRIQ [Concomitant]
     Active Substance: MIRABEGRON
     Indication: BLADDER DISORDER
  3. HUMIRA [Suspect]
     Active Substance: ADALIMUMAB
     Route: 058
  4. METOPROLOL. [Concomitant]
     Active Substance: METOPROLOL
     Indication: HEART RATE INCREASED
  5. ELIQUIS [Concomitant]
     Active Substance: APIXABAN
     Indication: THROMBOSIS PROPHYLAXIS
  6. CARAFATE [Concomitant]
     Active Substance: SUCRALFATE
     Indication: OESOPHAGEAL SPASM
  7. PHENERGAN [Concomitant]
     Active Substance: PROMETHAZINE HYDROCHLORIDE
     Indication: NAUSEA
  8. HUMIRA [Suspect]
     Active Substance: ADALIMUMAB
     Route: 058
  9. VRAYLAR [Concomitant]
     Active Substance: CARIPRAZINE
     Indication: DEPRESSION
  10. MODERNA COVID?19 VACCINE [Concomitant]
     Active Substance: CX-024414
     Indication: COVID-19 IMMUNISATION
     Route: 030
  11. IRBESARTAN. [Concomitant]
     Active Substance: IRBESARTAN
     Indication: HYPERTENSION
  12. METOPROLOL. [Concomitant]
     Active Substance: METOPROLOL
     Indication: HYPERTENSION
  13. TRAZODONE [Concomitant]
     Active Substance: TRAZODONE HYDROCHLORIDE
     Indication: SLEEP DISORDER THERAPY
  14. VRAYLAR [Concomitant]
     Active Substance: CARIPRAZINE
     Indication: BIPOLAR DISORDER
  15. CARAFATE [Concomitant]
     Active Substance: SUCRALFATE
     Indication: ABDOMINAL DISCOMFORT
  16. LAMOTRIGINE. [Concomitant]
     Active Substance: LAMOTRIGINE
     Indication: BIPOLAR DISORDER
  17. HUMIRA [Suspect]
     Active Substance: ADALIMUMAB
     Indication: CROHN^S DISEASE
     Route: 058
     Dates: start: 201801
  18. HUMIRA [Suspect]
     Active Substance: ADALIMUMAB
     Route: 058
  19. ESTRADIOL. [Concomitant]
     Active Substance: ESTRADIOL
     Indication: DRUG THERAPY
  20. PANTOPRAZOLE [Concomitant]
     Active Substance: PANTOPRAZOLE
     Indication: GASTROOESOPHAGEAL REFLUX DISEASE
  21. CHLOROTHIAZIDE. [Concomitant]
     Active Substance: CHLOROTHIAZIDE
     Indication: HYPERTENSION

REACTIONS (12)
  - Atrial fibrillation [Not Recovered/Not Resolved]
  - Weight decreased [Not Recovered/Not Resolved]
  - Retching [Unknown]
  - Heart rate increased [Recovering/Resolving]
  - Blood potassium decreased [Recovered/Resolved]
  - Cough [Not Recovered/Not Resolved]
  - Vomiting [Not Recovered/Not Resolved]
  - Nausea [Unknown]
  - Peripheral swelling [Recovered/Resolved]
  - Urinary tract infection [Recovering/Resolving]
  - Hypotension [Recovered/Resolved]
  - Hypertension [Unknown]

NARRATIVE: CASE EVENT DATE: 202102
